FAERS Safety Report 25051695 (Version 2)
Quarter: 2025Q2

REPORT INFORMATION
  Report Type: Spontaneous
  Country: PT (occurrence: PT)
  Receive Date: 20250307
  Receipt Date: 20250401
  Transmission Date: 20250717
  Serious: Yes (Other)
  Sender: BAUSCH AND LOMB
  Company Number: None

PATIENT
  Age: 27 Year
  Sex: Female

DRUGS (2)
  1. BRODALUMAB [Suspect]
     Active Substance: BRODALUMAB
     Indication: Psoriasis
     Dosage: SAME AS IN SMPC: 210 MG SC AT WEEKS 0, 1 AND 2, FOLLOWED BY 210 MG EVERY 2 WEEKS
     Route: 058
     Dates: start: 20220106, end: 20220120
  2. BRODALUMAB [Suspect]
     Active Substance: BRODALUMAB
     Dosage: SAME AS IN SMPC: 210 MG SC AT WEEKS 0, 1 AND 2, FOLLOWED BY 210 MG EVERY 2 WEEKS
     Route: 058
     Dates: start: 20220127, end: 20241122

REACTIONS (1)
  - Pseudolymphoma [Recovered/Resolved]

NARRATIVE: CASE EVENT DATE: 20240705
